FAERS Safety Report 10232550 (Version 1)
Quarter: 2014Q2

REPORT INFORMATION
  Report Type: Spontaneous
  Country: US (occurrence: US)
  Receive Date: 20140612
  Receipt Date: 20140612
  Transmission Date: 20141212
  Serious: No
  Sender: FDA-Public Use
  Company Number: US-TEVA-466687USA

PATIENT
  Sex: 0

DRUGS (1)
  1. ESCITALOPRAM [Suspect]

REACTIONS (2)
  - Urticaria [Unknown]
  - Rash [Unknown]
